FAERS Safety Report 9323252 (Version 3)
Quarter: 2013Q3

REPORT INFORMATION
  Report Type: Report from Study
  Country: NZ (occurrence: NZ)
  Receive Date: 20130603
  Receipt Date: 20130729
  Transmission Date: 20140515
  Serious: Yes (Other)
  Sender: FDA-Public Use
  Company Number: NZ-CELGENEUS-118-C5013-13053039

PATIENT
  Age: 78 Year
  Sex: Female
  Weight: 60.6 kg

DRUGS (3)
  1. CC-5013 [Suspect]
     Indication: CHRONIC LYMPHOCYTIC LEUKAEMIA
     Dosage: 5 MILLIGRAM
     Route: 048
     Dates: start: 20110328, end: 20130604
  2. CC-5013 [Suspect]
     Dosage: 5 MILLIGRAM
     Route: 048
     Dates: start: 20130521, end: 20130604
  3. CC-5013 [Suspect]
     Route: 048
     Dates: end: 20130715

REACTIONS (1)
  - Adenocarcinoma of colon [Recovered/Resolved]
